FAERS Safety Report 17973326 (Version 3)
Quarter: 2020Q4

REPORT INFORMATION
  Report Type: Spontaneous
  Country: US (occurrence: US)
  Receive Date: 20200702
  Receipt Date: 20201202
  Transmission Date: 20210113
  Serious: Yes (Hospitalization, Other)
  Sender: FDA-Public Use
  Company Number: US-TAKEDA-2020TUS028704

PATIENT
  Age: 61 Year
  Sex: Male
  Weight: 75 kg

DRUGS (3)
  1. ICLUSIG [Suspect]
     Active Substance: PONATINIB
     Indication: CHRONIC MYELOID LEUKAEMIA
     Dosage: 15 MILLIGRAM, BID
     Route: 048
  2. ICLUSIG [Suspect]
     Active Substance: PONATINIB
     Dosage: UNK
     Route: 065
     Dates: start: 202005, end: 202010
  3. HYDROCODONE [Concomitant]
     Active Substance: HYDROCODONE
     Indication: PAIN
     Dosage: UNK
     Route: 065

REACTIONS (4)
  - Pancreatitis acute [Unknown]
  - Blood pressure increased [Not Recovered/Not Resolved]
  - Platelet count decreased [Recovered/Resolved]
  - Blood test abnormal [Recovered/Resolved]

NARRATIVE: CASE EVENT DATE: 202010
